FAERS Safety Report 5497643-3 (Version None)
Quarter: 2007Q4

REPORT INFORMATION
  Report Type: 
  Country: None (occurrence: None)
  Receive Date: 20071023
  Receipt Date: 20071009
  Transmission Date: 20080405
  Serious: Yes (Life-Threatening, Hospitalization, Disabling)
  Sender: FDA-Public Use
  Company Number: 2007P1000339

PATIENT
  Age: 49 Year
  Sex: Male

DRUGS (10)
  1. BUSULFAN (BUSULFAN) [Suspect]
     Indication: STEM CELL TRANSPLANT
     Dosage: 40 ML;QD;IV
     Route: 042
     Dates: start: 20070309, end: 20070310
  2. NARTOGRASTIM (NARTOGRASTIM) [Suspect]
     Indication: GRAFT VERSUS HOST DISEASE
     Dosage: ;IV
     Route: 042
     Dates: start: 20070326, end: 20070404
  3. TRIMETHYLCETYLAMMONIUM PENTACHLOROPHENATE (NO PREF. NAME) [Suspect]
     Indication: DRUG USE FOR UNKNOWN INDICATION
  4. CLADRIBINE [Concomitant]
  5. PHENYTOIN [Concomitant]
  6. LENOGRASTIM [Concomitant]
  7. NEUPOGEN [Concomitant]
  8. TACROLIMUS [Concomitant]
  9. MYCOPHENOLATE MOFETIL [Concomitant]
  10. METHOTREXATE [Concomitant]

REACTIONS (14)
  - ANOREXIA [None]
  - BONE MARROW TRANSPLANT REJECTION [None]
  - CENTRAL LINE INFECTION [None]
  - CYTOMEGALOVIRUS INFECTION [None]
  - DIARRHOEA [None]
  - GAMMA-GLUTAMYLTRANSFERASE INCREASED [None]
  - HYPERBILIRUBINAEMIA [None]
  - MALAISE [None]
  - PAIN IN EXTREMITY [None]
  - PATHOGEN RESISTANCE [None]
  - PSEUDOMEMBRANOUS COLITIS [None]
  - SEPSIS [None]
  - STAPHYLOCOCCAL SEPSIS [None]
  - THROMBOTIC MICROANGIOPATHY [None]
